FAERS Safety Report 9393487 (Version 7)
Quarter: 2013Q4

REPORT INFORMATION
  Report Type: Report from Study
  Country: GB (occurrence: GB)
  Receive Date: 20130710
  Receipt Date: 20131226
  Transmission Date: 20140711
  Serious: Yes (Hospitalization)
  Sender: FDA-Public Use
  Company Number: PHHO2013GB008921

PATIENT
  Sex: 0

DRUGS (6)
  1. AEB071 [Suspect]
     Indication: METASTATIC MALIGNANT MELANOMA
     Dosage: 800 MG, TID
     Dates: start: 20130701
  2. AEB071 [Suspect]
     Dosage: NO TREATMENT
     Dates: start: 20131104, end: 20131108
  3. AEB071 [Suspect]
     Dosage: UNK
     Dates: start: 20131114
  4. ONDANSETRON [Suspect]
     Indication: NAUSEA
     Dosage: 8 MG, BID
     Route: 048
     Dates: start: 20130701
  5. DOMPERIDONE [Suspect]
     Indication: NAUSEA
     Dosage: 10 MG, QD
     Route: 048
     Dates: start: 20130701
  6. CYCLIZINE [Concomitant]
     Indication: NAUSEA
     Dosage: 50 MG, TID

REACTIONS (2)
  - Syncope [Recovered/Resolved]
  - Haematemesis [Recovered/Resolved]
